FAERS Safety Report 4607639-9 (Version None)
Quarter: 2005Q1

REPORT INFORMATION
  Report Type: 
  Country: None (occurrence: None)
  Receive Date: 20050309
  Receipt Date: 20050221
  Transmission Date: 20050727
  Serious: Yes (Other)
  Sender: FDA-Public Use
  Company Number: FR_050205887

PATIENT
  Sex: Female

DRUGS (1)
  1. RALOXIFENE HCL [Suspect]
     Indication: OSTEOPOROSIS
     Dosage: 60 MG/1 DAY

REACTIONS (1)
  - RETINAL VASCULAR THROMBOSIS [None]
